FAERS Safety Report 6987619-9 (Version None)
Quarter: 2010Q3

REPORT INFORMATION
  Report Type: 
  Country: None (occurrence: None)
  Receive Date: 20100916
  Receipt Date: 20100908
  Transmission Date: 20110219
  Serious: Yes (Hospitalization)
  Sender: FDA-Public Use
  Company Number: CH-ASTRAZENECA-2010SE42305

PATIENT
  Age: 59 Year
  Sex: Female

DRUGS (6)
  1. ATACAND [Suspect]
     Route: 048
  2. XANAX [Suspect]
     Route: 048
     Dates: start: 20100602, end: 20100720
  3. XANAX [Suspect]
     Route: 048
     Dates: start: 20100720, end: 20100806
  4. BUDENOFALK [Suspect]
     Indication: AUTOIMMUNE HEPATITIS
     Route: 048
     Dates: start: 20100609, end: 20100728
  5. BUDENOFALK [Suspect]
     Route: 048
     Dates: start: 20100728, end: 20100819
  6. PREDNISONE [Suspect]
     Indication: AUTOIMMUNE HEPATITIS
     Route: 048
     Dates: start: 20100602, end: 20100609

REACTIONS (1)
  - DEPRESSION SUICIDAL [None]
